FAERS Safety Report 14307458 (Version 2)
Quarter: 2018Q1

REPORT INFORMATION
  Report Type: Spontaneous
  Country: US (occurrence: US)
  Receive Date: 20171220
  Receipt Date: 20180216
  Transmission Date: 20180509
  Serious: No
  Sender: FDA-Public Use
  Company Number: US-PFIZER INC-2017538504

PATIENT
  Age: 38 Year
  Sex: Female
  Weight: 88 kg

DRUGS (7)
  1. NEURONTIN [Concomitant]
     Active Substance: GABAPENTIN
     Indication: SCOLIOSIS
  2. NEURONTIN [Concomitant]
     Active Substance: GABAPENTIN
     Indication: EXOSTOSIS
  3. LAMOTRIGINE. [Concomitant]
     Active Substance: LAMOTRIGINE
     Dosage: 150 MG, UNK
     Dates: start: 2008
  4. NAPROXEN. [Concomitant]
     Active Substance: NAPROXEN
     Indication: PAIN
  5. SUMATRIPTAN. [Concomitant]
     Active Substance: SUMATRIPTAN
     Indication: MIGRAINE
     Dosage: 15 MG, UNK
  6. VENLAFAXINE [Concomitant]
     Active Substance: VENLAFAXINE HYDROCHLORIDE
     Indication: DEPRESSION
     Dosage: 150 MG, UNK
     Dates: start: 2008
  7. ATROPINE SULFATE/DIPHENOXYLATE HYDROCHLORIDE [Suspect]
     Active Substance: ATROPINE SULFATE\DIPHENOXYLATE HYDROCHLORIDE
     Indication: INFLAMMATORY BOWEL DISEASE
     Dosage: 2.5 MG, UNK
     Route: 048
     Dates: start: 201106, end: 201710

REACTIONS (5)
  - Palpitations [Unknown]
  - Dyspnoea [Unknown]
  - Tachycardia [Not Recovered/Not Resolved]
  - Product use in unapproved indication [Recovered/Resolved]
  - Product use issue [None]

NARRATIVE: CASE EVENT DATE: 201106
